FAERS Safety Report 8291553-4 (Version None)
Quarter: 2012Q2

REPORT INFORMATION
  Report Type: 
  Country: None (occurrence: None)
  Receive Date: 20120417
  Receipt Date: 20120412
  Transmission Date: 20120825
  Serious: Yes (Other)
  Sender: FDA-Public Use
  Company Number: PHHY2012MX031660

PATIENT
  Sex: Male

DRUGS (4)
  1. DIOVAN HCT [Suspect]
     Indication: HYPERTENSION
     Dosage: 1 DF X (160/12.5 MG), DAILY
  2. LOPRESSOR [Concomitant]
     Dosage: UNK UKN, UNK
  3. CO-PLAVIX [Concomitant]
     Dosage: UNK UKN, UNK
  4. PRESONE [Concomitant]
     Dosage: UNK UKN, UNK

REACTIONS (2)
  - CARDIOVASCULAR DISORDER [None]
  - INFARCTION [None]
